FAERS Safety Report 10080478 (Version 1)
Quarter: 2014Q2

REPORT INFORMATION
  Report Type: Spontaneous
  Country: DK (occurrence: DK)
  Receive Date: 20140416
  Receipt Date: 20140416
  Transmission Date: 20141212
  Serious: Yes (Hospitalization)
  Sender: FDA-Public Use
  Company Number: DK-UCBSA-117707

PATIENT
  Sex: 0

DRUGS (1)
  1. CERTOLIZUMAB PEGOL [Suspect]

REACTIONS (1)
  - Urticaria [Unknown]
